FAERS Safety Report 9026864 (Version 3)
Quarter: 2013Q2

REPORT INFORMATION
  Report Type: Report from Study
  Country: PL (occurrence: PL)
  Receive Date: 20130123
  Receipt Date: 20130408
  Transmission Date: 20140414
  Serious: Yes (Death, Life-Threatening, Hospitalization, Other)
  Sender: FDA-Public Use
  Company Number: PL-AMGEN-POLCT2011008097

PATIENT
  Age: 63 Year
  Sex: Female
  Weight: 56 kg

DRUGS (16)
  1. PANITUMUMAB [Suspect]
     Indication: COLORECTAL CANCER METASTATIC
     Dosage: 324 MG, UNK
     Dates: start: 20110124, end: 20110124
  2. ELECTROLYTE SOLUTIONS [Concomitant]
     Indication: ASTHENIA
     Dosage: UNK
     Route: 042
     Dates: start: 20110124, end: 20110209
  3. ELECTROLYTE SOLUTIONS [Concomitant]
     Indication: DIARRHOEA
  4. DICLAC [Concomitant]
     Indication: ABDOMINAL PAIN
     Dosage: UNK
     Route: 048
     Dates: start: 20100617, end: 20110209
  5. CLEMASTIN [Concomitant]
     Indication: HYPERSENSITIVITY
     Dosage: UNK
     Route: 042
     Dates: start: 20110124, end: 20110209
  6. LOPERAMID [Concomitant]
     Indication: DIARRHOEA
     Dosage: UNK
     Route: 048
     Dates: start: 20110130, end: 20110209
  7. NACL [Concomitant]
     Indication: VOMITING
     Dosage: UNK
     Route: 042
     Dates: start: 20110131, end: 20110207
  8. NACL [Concomitant]
     Indication: DIARRHOEA
  9. BUPRENORPHINE [Concomitant]
     Indication: ABDOMINAL PAIN
     Dosage: UNK
     Route: 050
     Dates: start: 20110117, end: 20110209
  10. STILNOX [Concomitant]
     Indication: INSOMNIA
     Dosage: UNK
     Route: 048
     Dates: start: 20110117, end: 20110209
  11. POLPRAZOL [Concomitant]
     Indication: ABDOMINAL PAIN
     Dosage: UNK
     Route: 048
     Dates: start: 20100617, end: 20110209
  12. SCOPOLAN [Concomitant]
     Indication: ABDOMINAL PAIN
     Dosage: UNK
     Route: 048
     Dates: start: 20110117, end: 20110209
  13. SPIRONOL [Concomitant]
     Indication: ABDOMINAL PAIN
     Dosage: UNK
     Route: 048
     Dates: start: 20110117, end: 20110209
  14. ESPUMISAN [Concomitant]
     Indication: ABDOMINAL PAIN
     Dosage: UNK
     Route: 048
     Dates: start: 20110124, end: 20110209
  15. METOCLOPRAMID [Concomitant]
     Indication: CONSTIPATION
     Dosage: UNK
     Route: 048
     Dates: start: 20110117, end: 20110209
  16. BISOCARD [Concomitant]
     Indication: HYPERTENSION
     Dosage: UNK
     Route: 048
     Dates: start: 20110117, end: 20110209

REACTIONS (2)
  - Diarrhoea [Recovered/Resolved]
  - Colon cancer [Fatal]
